FAERS Safety Report 15761217 (Version 1)
Quarter: 2018Q4

REPORT INFORMATION
  Report Type: Spontaneous
  Country: FR (occurrence: FR)
  Receive Date: 20181226
  Receipt Date: 20181226
  Transmission Date: 20190205
  Serious: Yes (Hospitalization)
  Sender: FDA-Public Use
  Company Number: FR-PFIZER INC-2016141948

PATIENT
  Age: 79 Year
  Sex: Female

DRUGS (15)
  1. KARDEGIC [Concomitant]
     Active Substance: ASPIRIN DL-LYSINE
     Dosage: UNK
     Route: 065
  2. NEBILOX [Concomitant]
     Active Substance: NEBIVOLOL HYDROCHLORIDE
     Dosage: UNK
     Route: 065
  3. LYRICA [Concomitant]
     Active Substance: PREGABALIN
     Dosage: UNK
     Route: 065
  4. METFORMIN [Concomitant]
     Active Substance: METFORMIN HYDROCHLORIDE
     Dosage: UNK
     Route: 065
  5. UVEDOSE [Concomitant]
     Active Substance: CHOLECALCIFEROL
     Dosage: UNK
     Route: 065
  6. IMOVANE [Concomitant]
     Active Substance: ZOPICLONE
     Dosage: UNK
     Route: 065
  7. IMETH [Suspect]
     Active Substance: METHOTREXATE SODIUM
     Dosage: 10 MG, UNK (10 MG, IN MORNING)
     Route: 048
     Dates: start: 20151214, end: 20160105
  8. AMLOR [Concomitant]
     Active Substance: AMLODIPINE BESYLATE
     Dosage: UNK
     Route: 065
  9. LAMALINE [Concomitant]
     Dosage: UNK
     Route: 065
  10. BIPRETERAX [Concomitant]
     Active Substance: INDAPAMIDE\PERINDOPRIL
     Dosage: UNK
     Route: 065
  11. XANAX [Concomitant]
     Active Substance: ALPRAZOLAM
     Dosage: UNK
     Route: 065
  12. INEGY [Concomitant]
     Active Substance: EZETIMIBE\SIMVASTATIN
     Dosage: UNK
     Route: 065
  13. CORTANCYL [Concomitant]
     Active Substance: PREDNISONE
     Dosage: UNK
     Route: 065
  14. IMETH [Suspect]
     Active Substance: METHOTREXATE SODIUM
     Indication: RHEUMATOID ARTHRITIS
     Dosage: 15 MG, WEEKLY (15 MG, ON MONDAYS)
     Route: 048
     Dates: start: 20151214, end: 20160105
  15. PARACETAMOL [Concomitant]
     Active Substance: ACETAMINOPHEN
     Dosage: UNK
     Route: 065

REACTIONS (10)
  - Vomiting [Unknown]
  - Escherichia urinary tract infection [Unknown]
  - Pancytopenia [Recovered/Resolved]
  - Inappropriate schedule of product administration [Unknown]
  - Diarrhoea [Unknown]
  - Accidental overdose [Unknown]
  - Face oedema [Unknown]
  - Disorientation [Unknown]
  - Bone marrow failure [Unknown]
  - Oral herpes [Unknown]

NARRATIVE: CASE EVENT DATE: 20160105
